FAERS Safety Report 7837669 (Version 2)
Quarter: 2013Q1

REPORT INFORMATION
  Report Type: Spontaneous
  Country: US (occurrence: US)
  Receive Date: 20110302
  Receipt Date: 20130103
  Transmission Date: 20140127
  Serious: Yes (Death, Hospitalization, Other)
  Sender: FDA-Public Use
  Company Number: US-PFIZER INC-2009305751

PATIENT
  Age: 36 Year
  Sex: Male

DRUGS (17)
  1. DILANTIN [Suspect]
     Indication: CONVULSION
     Dosage: 300 MG, 1X/DAY AT BEDTIME
     Route: 048
     Dates: start: 20061014
  2. DILANTIN [Suspect]
     Dosage: 100 MG, 4X/DAY
     Route: 048
     Dates: start: 20061025, end: 20061114
  3. DECADRON [Concomitant]
     Indication: OEDEMA
     Dosage: 4 MG, 4X/DAY
     Route: 048
     Dates: start: 20061016, end: 20061019
  4. DECADRON [Concomitant]
     Dosage: 4 MG, 2X/DAY
     Route: 048
     Dates: start: 20061025, end: 20061027
  5. DECADRON [Concomitant]
     Dosage: 2 MG, 2X/DAY
     Route: 048
     Dates: start: 20061027, end: 20061029
  6. DECADRON [Concomitant]
     Dosage: 1 MG, 2X/DAY
     Route: 048
     Dates: start: 20061029, end: 20061031
  7. NITROPRUSSIDE [Concomitant]
     Indication: BLOOD PRESSURE ABNORMAL
     Dosage: 50 MG, AS NEEDED
     Dates: start: 20061024, end: 20061026
  8. NORCO [Concomitant]
     Indication: PAIN
     Dosage: 5/325MG 2 TABLETS EVERY 4 HOURS
     Route: 048
     Dates: start: 20061024, end: 20061027
  9. MILK OF MAGNESIA [Concomitant]
     Indication: CONSTIPATION
     Dosage: 15 ML, AS NEEDED
     Route: 048
     Dates: start: 20061024, end: 20061027
  10. GLUTOSE [Concomitant]
     Indication: HYPOGLYCAEMIA
     Dosage: 45 G, AS NEEDED
     Route: 048
     Dates: start: 20061025, end: 20061026
  11. GLUCAGON [Concomitant]
     Indication: HYPOGLYCAEMIA
     Dosage: 1 MG, UNK
     Route: 030
     Dates: start: 20061025
  12. VASOTEC [Concomitant]
     Indication: BLOOD PRESSURE ABNORMAL
     Dosage: 1.25 MG, 4X/DAY
     Route: 042
     Dates: start: 20061025
  13. PEPCID [Concomitant]
     Indication: GASTRIC DISORDER
     Dosage: 20 MG, 2X/DAY
     Route: 048
     Dates: start: 20061025, end: 20061027
  14. MYLANTA [Concomitant]
     Indication: CONSTIPATION
     Dosage: 30 ML, AS NEEDED
     Route: 048
     Dates: start: 20061025, end: 20061026
  15. VASOTEC [Concomitant]
     Indication: HYPERTENSION
     Dosage: 5 MG, 2X/DAY
     Route: 048
     Dates: start: 20061026
  16. CLONIDINE [Concomitant]
     Indication: BLOOD PRESSURE SYSTOLIC ABNORMAL
     Dosage: 0.1 MG, 4X/DAY AS NEEDED
     Route: 048
     Dates: start: 20061026
  17. COMBIVENT [Concomitant]
     Indication: DYSPNOEA
     Dosage: 2 PUFFS, 4X/DAY
     Dates: start: 20061026, end: 20061027

REACTIONS (1)
  - Stevens-Johnson syndrome [Fatal]
